FAERS Safety Report 8311099-4 (Version None)
Quarter: 2012Q2

REPORT INFORMATION
  Report Type: 
  Country: None (occurrence: None)
  Receive Date: 20120425
  Receipt Date: 20120412
  Transmission Date: 20120825
  Serious: Yes (Death)
  Sender: FDA-Public Use
  Company Number: BR-ALEXION-A201200760

PATIENT
  Sex: Female

DRUGS (2)
  1. WARFARIN SODIUM [Concomitant]
  2. SOLIRIS [Suspect]
     Indication: PAROXYSMAL NOCTURNAL HAEMOGLOBINURIA
     Dosage: 900 MG, UNK
     Dates: start: 20110908, end: 20120413

REACTIONS (1)
  - MENINGITIS MENINGOCOCCAL [None]
